FAERS Safety Report 5586697-1 (Version None)
Quarter: 2008Q1

REPORT INFORMATION
  Report Type: 
  Country: None (occurrence: None)
  Receive Date: 20080110
  Receipt Date: 20071005
  Transmission Date: 20080703
  Serious: No
  Sender: FDA-Public Use
  Company Number: US-BAYER-US-2007-038178

PATIENT
  Sex: Female

DRUGS (1)
  1. YAZ [Suspect]
     Indication: MENOMETRORRHAGIA
     Route: 048
     Dates: start: 20070929

REACTIONS (5)
  - ABDOMINAL PAIN [None]
  - INFECTIOUS MONONUCLEOSIS [None]
  - PAIN [None]
  - PELVIC PAIN [None]
  - PYREXIA [None]
